FAERS Safety Report 13056320 (Version 3)
Quarter: 2017Q1

REPORT INFORMATION
  Report Type: Report from Study
  Country: None (occurrence: US)
  Receive Date: 20161222
  Receipt Date: 20170120
  Transmission Date: 20170428
  Serious: Yes (Hospitalization)
  Sender: FDA-Public Use
  Company Number: US-ABBVIE-16P-163-1818389-00

PATIENT
  Age: 61 Year
  Sex: Male
  Weight: 86.18 kg

DRUGS (2)
  1. TAK-700 [Concomitant]
     Active Substance: ORTERONEL
     Indication: PROSTATE CANCER
     Dosage: UNK
     Route: 048
     Dates: start: 20150420, end: 20161207
  2. LEUPROLIDE ACETATE. [Suspect]
     Active Substance: LEUPROLIDE ACETATE
     Indication: PROSTATE CANCER
     Dosage: UNK
     Route: 030
     Dates: start: 20150420, end: 20160915

REACTIONS (1)
  - Femoral neck fracture [Recovered/Resolved]

NARRATIVE: CASE EVENT DATE: 20161207
